FAERS Safety Report 17875131 (Version 3)
Quarter: 2020Q3

REPORT INFORMATION
  Report Type: Report from Study
  Country: IT (occurrence: IT)
  Receive Date: 20200609
  Receipt Date: 20200807
  Transmission Date: 20201103
  Serious: Yes (Other)
  Sender: FDA-Public Use
  Company Number: IT-SHIONOGI, INC-2020000302

PATIENT

DRUGS (45)
  1. QUETIAPINE. [Concomitant]
     Active Substance: QUETIAPINE
     Indication: DELIRIUM
     Dosage: 50 MG, TID
     Route: 048
     Dates: end: 20200520
  2. CEFTOLOZANE;TAZOBACTAM [Concomitant]
     Active Substance: CEFTOLOZANE SULFATE\TAZOBACTAM SODIUM
     Indication: ANTIBIOTIC THERAPY
     Dosage: 3 G, TID
     Route: 042
     Dates: start: 20200506, end: 20200509
  3. FOSFOMYCIN [Concomitant]
     Active Substance: FOSFOMYCIN
     Indication: ANTIBIOTIC THERAPY
     Dosage: 6 G, Q 6H
     Route: 042
     Dates: start: 20200512
  4. ACETYLCYSTEINE. [Concomitant]
     Active Substance: ACETYLCYSTEINE
     Indication: SPUTUM ABNORMAL
     Dosage: 600 MG, BID
     Route: 042
  5. METOCLOPRAMIDE. [Concomitant]
     Active Substance: METOCLOPRAMIDE
     Indication: GASTROINTESTINAL MOTILITY DISORDER
     Dosage: 10 MG, TID
     Route: 042
  6. AVIBACTAM;CEFTAZIDIME [Concomitant]
     Active Substance: AVIBACTAM SODIUM\CEFTAZIDIME
     Indication: ANTIBIOTIC THERAPY
     Dosage: 2.5 G, TID
     Route: 042
     Dates: start: 20200509, end: 20200511
  7. DAPTOMYCIN. [Concomitant]
     Active Substance: DAPTOMYCIN
     Indication: ANTIBIOTIC THERAPY
     Dosage: 800 MG Q 48H
     Route: 042
     Dates: start: 20200512, end: 20200519
  8. NOREPINEPHRINE. [Concomitant]
     Active Substance: NOREPINEPHRINE
     Indication: CARDIAC CONTRACTILITY MODULATION THERAPY
     Dosage: VARIABLE, IV CONTINOUS
     Route: 042
     Dates: start: 20200519, end: 20200522
  9. GENTAMYCINUM [Concomitant]
     Indication: ANTIBIOTIC THERAPY
     Dosage: 50 MG, QD
     Route: 042
     Dates: start: 20200525
  10. HYDROXYZINE [Concomitant]
     Active Substance: HYDROXYZINE HYDROCHLORIDE
     Indication: PRODUCT USED FOR UNKNOWN INDICATION
     Dosage: 2 ML, BID
     Route: 048
     Dates: start: 20200530
  11. FENTANEST [FENTANYL] [Concomitant]
     Indication: SEDATION
     Dosage: 0.7 ?G/KH/H, IV CONTINOUS
     Route: 042
     Dates: start: 20200519, end: 20200525
  12. METHADONE [Concomitant]
     Active Substance: METHADONE HYDROCHLORIDE
     Indication: PRODUCT USED FOR UNKNOWN INDICATION
     Dosage: 5 MG, BID
     Route: 048
     Dates: start: 20200525, end: 20200531
  13. VALPROATE [Concomitant]
     Active Substance: VALPROIC ACID
     Indication: SEIZURE
     Dosage: 2 MG/KG/H
  14. BLINDED S?649266 [Suspect]
     Active Substance: CEFIDEROCOL
     Indication: EMPYEMA
  15. ALBUMINE [Concomitant]
     Active Substance: ALBUMIN HUMAN
     Indication: PARENTERAL NUTRITION
     Dosage: 20 G, BID
     Route: 042
  16. DOXAZOSIN [Concomitant]
     Active Substance: DOXAZOSIN MESYLATE
     Indication: HYPERTENSION
     Dosage: 2 MG, BID
     Route: 048
     Dates: end: 20200526
  17. FUROSEMIDE. [Concomitant]
     Active Substance: FUROSEMIDE
     Indication: RENAL INJURY
     Dosage: 720 MG, QD
     Route: 042
  18. CANRENOATE POTASSIUM [Concomitant]
     Active Substance: CANRENOATE POTASSIUM
     Indication: PRODUCT USED FOR UNKNOWN INDICATION
     Dosage: 200 MG, QD
     Route: 042
  19. THYROXINE [Concomitant]
     Active Substance: LEVOTHYROXINE
     Indication: HYPOTHYROIDISM
     Dosage: 50?G, QD
     Route: 048
  20. METOLAZONE. [Concomitant]
     Active Substance: METOLAZONE
     Indication: DIURETIC THERAPY
     Dosage: 5 MG, BID
     Route: 048
     Dates: start: 20200505
  21. URSODEOXYCHOLIC ACID [Concomitant]
     Active Substance: URSODIOL
     Indication: PRODUCT USED FOR UNKNOWN INDICATION
     Dosage: 300 MG, BID
     Route: 042
     Dates: start: 20200512
  22. DIGOXIN. [Concomitant]
     Active Substance: DIGOXIN
     Indication: ATRIAL FIBRILLATION
     Dosage: 0.25 MG, QD
     Route: 042
     Dates: start: 20200530
  23. CORLOPAM [Concomitant]
     Active Substance: FENOLDOPAM MESYLATE
     Indication: PRODUCT USED FOR UNKNOWN INDICATION
     Dosage: 0.1 ?G/KG/MIN IV CONTINOUS
     Route: 042
     Dates: start: 20200531
  24. DIAZEPAM. [Concomitant]
     Active Substance: DIAZEPAM
     Indication: SEIZURE
  25. BLINDED S?649266 [Suspect]
     Active Substance: CEFIDEROCOL
     Indication: PNEUMONIA
     Dosage: 2 G, TID
     Route: 042
     Dates: start: 20200522, end: 20200603
  26. ERYTHROPOIETIN [Concomitant]
     Active Substance: ERYTHROPOIETIN
     Indication: ANAEMIA
     Dosage: 10000 IU 3 X WEEKLY
     Route: 058
  27. PERPHENAZINE. [Concomitant]
     Active Substance: PERPHENAZINE
     Indication: DELIRIUM
     Dosage: 2 MG, QD
     Route: 048
  28. CITALOPRAM [Concomitant]
     Active Substance: CITALOPRAM HYDROBROMIDE
     Indication: ANTIDEPRESSANT THERAPY
     Dosage: 20 MG, QD
     Route: 048
     Dates: start: 20200524
  29. INSULIN [Concomitant]
     Active Substance: INSULIN NOS
     Indication: MEDICAL ANABOLIC THERAPY
     Dosage: 5 [IU], TID
     Route: 058
     Dates: start: 20200530
  30. BLINDED S?649266 [Suspect]
     Active Substance: CEFIDEROCOL
     Indication: PNEUMONIA PSEUDOMONAL
  31. AMPHOTERICIN B. [Concomitant]
     Active Substance: AMPHOTERICIN B
     Indication: SYSTEMIC CANDIDA
     Dosage: 250 MG, QD
     Route: 042
     Dates: start: 20200421, end: 20200522
  32. PANTOPRAZOLE [Concomitant]
     Active Substance: PANTOPRAZOLE
     Indication: GASTRITIS PROPHYLAXIS
     Dosage: 40 MG, BID
     Route: 042
  33. CLONAZEPAM. [Concomitant]
     Active Substance: CLONAZEPAM
     Indication: PRODUCT USED FOR UNKNOWN INDICATION
     Dosage: 10 DROPS TID
     Route: 048
  34. CALCIFEDIOL [Concomitant]
     Active Substance: CALCIFEDIOL
     Indication: PRODUCT USED FOR UNKNOWN INDICATION
     Dosage: 15 DROPS OD
     Route: 048
  35. AMITRIPTYLINE [Concomitant]
     Active Substance: AMITRIPTYLINE
     Indication: PRODUCT USED FOR UNKNOWN INDICATION
     Dosage: 5 DROPS,  BID
     Route: 048
  36. CASPOFUNGIN [Concomitant]
     Active Substance: CASPOFUNGIN
     Indication: SYSTEMIC CANDIDA
     Dosage: 50 MG, QD
     Route: 042
     Dates: start: 20200504, end: 20200527
  37. CEFTOLOZANE;TAZOBACTAM [Concomitant]
     Active Substance: CEFTOLOZANE SULFATE\TAZOBACTAM SODIUM
     Dosage: 3 G, TID
     Route: 042
     Dates: start: 20200511, end: 20200522
  38. AMPICILLIN [Concomitant]
     Active Substance: AMPICILLIN
     Indication: ANTIBIOTIC THERAPY
     Dosage: 3 G, Q 6H
     Route: 042
     Dates: start: 20200512, end: 20200526
  39. FENTANEST [FENTANYL] [Concomitant]
     Dosage: 0.7 MG/KH/H, IV CONTINOUS
     Route: 042
     Dates: start: 20200603
  40. FENOLDOPAM [Concomitant]
     Active Substance: FENOLDOPAM
     Indication: HYPERTENSION
     Dosage: 0.2 ?G/KG/MIN OD
     Route: 042
     Dates: end: 20200504
  41. CALCIUM GLUCONATE. [Concomitant]
     Active Substance: CALCIUM GLUCONATE
     Indication: PRODUCT USED FOR UNKNOWN INDICATION
     Dosage: 1 G, BID
     Route: 042
  42. BISOPROLOL [Concomitant]
     Active Substance: BISOPROLOL
     Indication: HYPERTENSION
     Dosage: 2.5 MG, BID
     Route: 048
     Dates: end: 20200524
  43. IMMUNGLOBULIN [Concomitant]
     Active Substance: HUMAN IMMUNOGLOBULIN G
     Indication: PRODUCT USED FOR UNKNOWN INDICATION
     Dosage: 25 G, QD
     Route: 042
     Dates: start: 20200513, end: 20200517
  44. SOMATOSTATIN [Concomitant]
     Active Substance: SOMATOSTATIN
     Indication: GASTROINTESTINAL HAEMORRHAGE
     Dosage: 3.5 ?G/KG/H, IV CONTINOUS
     Route: 042
     Dates: start: 20200521
  45. WARFARINUM [Concomitant]
     Indication: ANTICOAGULANT THERAPY
     Dosage: VARIABLE, OD
     Route: 048
     Dates: end: 20200516

REACTIONS (1)
  - Seizure [Recovered/Resolved]

NARRATIVE: CASE EVENT DATE: 20200603
